FAERS Safety Report 16446781 (Version 3)
Quarter: 2019Q3

REPORT INFORMATION
  Report Type: Not Available
  Country: US (occurrence: US)
  Receive Date: 20190618
  Receipt Date: 20190729
  Transmission Date: 20191004
  Serious: Yes (Hospitalization, Other)
  Sender: FDA-Public Use
  Company Number: US-NEUROCRINE BIOSCIENCES INC.-2019NBI01545

PATIENT
  Age: 74 Year
  Sex: Male

DRUGS (16)
  1. INGREZZA [Suspect]
     Active Substance: VALBENAZINE
     Dates: start: 201907
  2. DIVALPROEX [Concomitant]
     Active Substance: DIVALPROEX SODIUM
     Dosage: AT BEDTIME
  3. INGREZZA [Suspect]
     Active Substance: VALBENAZINE
     Indication: TARDIVE DYSKINESIA
     Route: 048
     Dates: start: 20170714, end: 20170721
  4. CLOZARIL [Concomitant]
     Active Substance: CLOZAPINE
  5. FEROSUL [Concomitant]
  6. INGREZZA [Suspect]
     Active Substance: VALBENAZINE
     Dates: start: 20190602, end: 201907
  7. LEVOTHYROXINE. [Concomitant]
     Active Substance: LEVOTHYROXINE
     Indication: THYROID DISORDER
  8. FOLIC ACID. [Concomitant]
     Active Substance: FOLIC ACID
  9. INGREZZA [Suspect]
     Active Substance: VALBENAZINE
     Route: 048
     Dates: start: 20170722, end: 20170915
  10. CLOZARIL [Concomitant]
     Active Substance: CLOZAPINE
     Indication: SCHIZOPHRENIA
     Dosage: 200 MG TWICE DAILY, 25 MG TWO TABLETS TWICE DAILY, AND 100 MG TWICE DAILY (TOTAL 700 MG DAILY)
     Route: 048
  11. XALATAN [Concomitant]
     Active Substance: LATANOPROST
     Indication: GLAUCOMA
     Dosage: ONE DROP AT BEDTIME IN RIGHT EYE
  12. MELATONIN [Concomitant]
     Active Substance: MELATONIN
  13. CLOZARIL [Concomitant]
     Active Substance: CLOZAPINE
  14. INGREZZA [Suspect]
     Active Substance: VALBENAZINE
     Route: 048
     Dates: start: 20170916, end: 20190521
  15. PROPRANOLOL [Concomitant]
     Active Substance: PROPRANOLOL HYDROCHLORIDE
  16. ONDANSETRON [Concomitant]
     Active Substance: ONDANSETRON
     Indication: NAUSEA

REACTIONS (3)
  - Pneumonia [Recovered/Resolved]
  - Tardive dyskinesia [Unknown]
  - Hypotension [Recovered/Resolved]

NARRATIVE: CASE EVENT DATE: 201905
